FAERS Safety Report 21332384 (Version 1)
Quarter: 2022Q3

REPORT INFORMATION
  Report Type: Spontaneous
  Country: US (occurrence: US)
  Receive Date: 20220914
  Receipt Date: 20220914
  Transmission Date: 20221027
  Serious: No
  Sender: FDA-Public Use
  Company Number: US-BRISTOL-MYERS SQUIBB COMPANY-2022-104387

PATIENT
  Age: 76 Year
  Sex: Female
  Weight: 58.513 kg

DRUGS (1)
  1. INREBIC [Suspect]
     Active Substance: FEDRATINIB HYDROCHLORIDE
     Indication: Myelofibrosis
     Dosage: FREQ: DAILY
     Route: 048
     Dates: start: 202205

REACTIONS (2)
  - Arthritis [Unknown]
  - Full blood count decreased [Unknown]
